FAERS Safety Report 16461189 (Version 2)
Quarter: 2019Q2

REPORT INFORMATION
  Report Type: Spontaneous
  Country: CO (occurrence: CO)
  Receive Date: 20190621
  Receipt Date: 20190626
  Transmission Date: 20190711
  Serious: Yes (Other)
  Sender: FDA-Public Use
  Company Number: CO-AUROBINDO-AUR-APL-2019-036353

PATIENT

DRUGS (7)
  1. EMTRICITABINE;TENOFOVIR [Suspect]
     Active Substance: EMTRICITABINE\TENOFOVIR
     Dosage: UNK
     Route: 065
     Dates: start: 201609
  2. RALTEGRAVIR. [Suspect]
     Active Substance: RALTEGRAVIR
     Indication: HIV INFECTION
     Dosage: UNK
     Route: 065
     Dates: start: 201609
  3. EMTRICITABINE;TENOFOVIR [Suspect]
     Active Substance: EMTRICITABINE\TENOFOVIR
     Indication: HIV INFECTION
     Dosage: UNK
     Route: 065
  4. CISPLATIN. [Suspect]
     Active Substance: CISPLATIN
     Indication: BUSCHKE-LOWENSTEIN^S TUMOUR
     Dosage: UNK
     Route: 065
  5. 5-FLUOROURACIL [Suspect]
     Active Substance: FLUOROURACIL
     Indication: BUSCHKE-LOWENSTEIN^S TUMOUR
     Dosage: UNK
     Route: 065
  6. EFAVIRENZ. [Suspect]
     Active Substance: EFAVIRENZ
     Indication: HIV INFECTION
     Dosage: UNK
     Route: 065
  7. LOPINAVIR/RITONAVIR [Suspect]
     Active Substance: LOPINAVIR\RITONAVIR
     Indication: HIV INFECTION
     Dosage: UNK
     Route: 065

REACTIONS (1)
  - Toxic skin eruption [Unknown]
